FAERS Safety Report 11117904 (Version 2)
Quarter: 2015Q3

REPORT INFORMATION
  Report Type: Report from Study
  Country: US (occurrence: US)
  Receive Date: 20150518
  Receipt Date: 20150930
  Transmission Date: 20151125
  Serious: Yes (Hospitalization, Other)
  Sender: FDA-Public Use
  Company Number: US-GILEAD-2015-0153773

PATIENT
  Age: 43 Year
  Sex: Female

DRUGS (10)
  1. AMBRISENTAN [Suspect]
     Active Substance: AMBRISENTAN
     Indication: PULMONARY HYPERTENSION
  2. TYVASO [Concomitant]
     Active Substance: TREPROSTINIL
  3. CARDIZEM [Concomitant]
     Active Substance: DILTIAZEM HYDROCHLORIDE
  4. AMBRISENTAN [Suspect]
     Active Substance: AMBRISENTAN
     Indication: COR PULMONALE CHRONIC
     Dosage: 5 MG, QD
     Route: 065
     Dates: start: 20150210
  5. REBIF [Concomitant]
     Active Substance: INTERFERON BETA-1A
  6. METOPROLOL [Concomitant]
     Active Substance: METOPROLOL
  7. DIGOXIN. [Concomitant]
     Active Substance: DIGOXIN
  8. TRIAMTERENE. [Concomitant]
     Active Substance: TRIAMTERENE
  9. ALTACE [Concomitant]
     Active Substance: RAMIPRIL
  10. TORSEMIDE. [Concomitant]
     Active Substance: TORSEMIDE

REACTIONS (1)
  - Pneumonia [Recovered/Resolved]

NARRATIVE: CASE EVENT DATE: 20150506
